FAERS Safety Report 10214624 (Version 1)
Quarter: 2014Q2

REPORT INFORMATION
  Report Type: Spontaneous
  Country: US (occurrence: US)
  Receive Date: 20140603
  Receipt Date: 20140603
  Transmission Date: 20141212
  Serious: Yes (Other)
  Sender: FDA-Public Use
  Company Number: US-GLAXOSMITHKLINE-B0999370A

PATIENT
  Age: 62 Year
  Sex: Male

DRUGS (13)
  1. BUPROPION [Suspect]
     Indication: PRODUCT USED FOR UNKNOWN INDICATION
     Dosage: 125MG TWICE PER DAY
     Route: 048
  2. OXYCODONE [Suspect]
     Indication: PAIN
     Route: 048
  3. TRAZODONE [Suspect]
     Indication: INSOMNIA
     Dosage: 25MG AS REQUIRED
     Route: 048
  4. TRAMADOL [Suspect]
     Indication: PAIN
     Dosage: 50MG FOUR TIMES PER DAY
     Route: 048
  5. LORAZEPAM [Concomitant]
     Indication: WITHDRAWAL SYNDROME
     Dosage: 2MG AS REQUIRED
     Route: 048
  6. HEPARINE [Concomitant]
     Dosage: 5000IU THREE TIMES PER DAY
     Route: 030
  7. RANITIDINE [Concomitant]
     Dosage: 150MG TWICE PER DAY
     Route: 048
  8. DOCUSATE [Concomitant]
     Dosage: 100MG TWICE PER DAY
     Route: 048
  9. ACETAMINOPHEN [Concomitant]
     Indication: PAIN
     Dosage: 500MG AS REQUIRED
     Route: 048
  10. POLYETHYLENE GLYCOL [Concomitant]
     Indication: CONSTIPATION
     Dosage: 15G AS REQUIRED
     Route: 048
  11. CALCIUM + D. VITAMIN [Concomitant]
     Route: 048
  12. FOLATE [Concomitant]
     Dosage: 1MG PER DAY
     Route: 048
  13. MULTIVITAMIN [Concomitant]
     Route: 048

REACTIONS (27)
  - Serotonin syndrome [Recovered/Resolved]
  - Drug interaction [Recovered/Resolved]
  - Disorientation [Unknown]
  - Altered state of consciousness [Unknown]
  - Confusional state [Unknown]
  - Anxiety [Unknown]
  - Abasia [Unknown]
  - Hallucination, visual [Unknown]
  - Restlessness [Unknown]
  - Urinary incontinence [Unknown]
  - Diarrhoea [Unknown]
  - Pyrexia [Unknown]
  - Hypertension [Unknown]
  - Tachypnoea [Unknown]
  - Myoclonus [Unknown]
  - Tremor [Unknown]
  - Muscle rigidity [Unknown]
  - Hyperhidrosis [Unknown]
  - Mydriasis [Unknown]
  - Dysarthria [Unknown]
  - Irritability [Unknown]
  - Disturbance in attention [Unknown]
  - Leukocytosis [Unknown]
  - Hyponatraemia [Unknown]
  - Blood creatine phosphokinase increased [Unknown]
  - Blood urea increased [Unknown]
  - Heart rate increased [Unknown]
